FAERS Safety Report 9590339 (Version 1)
Quarter: 2013Q4

REPORT INFORMATION
  Report Type: Spontaneous
  Country: FR (occurrence: FR)
  Receive Date: 20131003
  Receipt Date: 20131003
  Transmission Date: 20140711
  Serious: Yes (Hospitalization)
  Sender: FDA-Public Use
  Company Number: FR-ROCHE-1282917

PATIENT
  Age: 69 Year
  Sex: Male

DRUGS (10)
  1. XELODA [Suspect]
     Indication: PRODUCT USED FOR UNKNOWN INDICATION
     Route: 048
     Dates: start: 20120702
  2. OXALIPLATIN [Suspect]
     Indication: PRODUCT USED FOR UNKNOWN INDICATION
     Route: 065
     Dates: start: 20120702
  3. EPIRUBICIN [Suspect]
     Indication: PRODUCT USED FOR UNKNOWN INDICATION
     Route: 065
     Dates: start: 20120702
  4. OMEPRAZOLE [Concomitant]
  5. KARDEGIC [Concomitant]
  6. INNOVAIR [Concomitant]
  7. ATARAX (FRANCE) [Concomitant]
  8. SINGULAIR [Concomitant]
  9. LEVOCETIRIZINE [Concomitant]
  10. TRAMADOL [Concomitant]

REACTIONS (1)
  - Diabetes mellitus [Unknown]
